APPROVED DRUG PRODUCT: ERIBULIN MESYLATE
Active Ingredient: ERIBULIN MESYLATE
Strength: 1MG/2ML (0.5MG/ML)
Dosage Form/Route: SOLUTION;INTRAVENOUS
Application: A218281 | Product #001 | TE Code: AP
Applicant: JIANGXI KVVIT PHARMACEUTICAL CO LTD
Approved: Jun 28, 2024 | RLD: No | RS: No | Type: RX